FAERS Safety Report 7920118-6 (Version None)
Quarter: 2011Q4

REPORT INFORMATION
  Report Type: 
  Country: None (occurrence: None)
  Receive Date: 20111115
  Receipt Date: 20111101
  Transmission Date: 20120403
  Serious: Yes (Hospitalization, Other)
  Sender: FDA-Public Use
  Company Number: 2011MA015808

PATIENT
  Sex: Female
  Weight: 106.1417 kg

DRUGS (29)
  1. NITROGLYCERIN [Concomitant]
  2. CEPHALEXIN [Concomitant]
  3. TOBRADEX [Concomitant]
  4. FLUTICASONE PROPIONATE [Concomitant]
  5. NITROGLYCERIN [Concomitant]
  6. MICRO-K [Concomitant]
  7. PREDNISONE TAB [Concomitant]
  8. ACYCLOVIR [Concomitant]
  9. APAP TAB [Concomitant]
  10. ASPIRIN [Concomitant]
  11. MIRALAX [Concomitant]
  12. DIGOXIN [Suspect]
     Dosage: 0.125 MG;QD;PO
     Route: 048
     Dates: start: 20070122, end: 20080902
  13. LASIX [Concomitant]
  14. ALBUTEROL [Concomitant]
  15. COMBIVENT [Concomitant]
  16. ATARAX [Concomitant]
  17. PREVACID [Concomitant]
  18. VYTORIN [Concomitant]
  19. CARDIZEM CD [Concomitant]
  20. ZOCOR [Concomitant]
  21. KLONOPIN [Concomitant]
  22. MOBIC [Concomitant]
  23. OCULAR [Concomitant]
  24. VALTREX [Concomitant]
  25. ENDOCET 7.5 [Concomitant]
  26. OMEPRAZOLE [Concomitant]
  27. TUSSIONEX [Concomitant]
  28. PRAVASTATIN [Concomitant]
  29. LYRICA [Concomitant]

REACTIONS (20)
  - CORONARY ARTERY STENOSIS [None]
  - PAIN [None]
  - OSTEOARTHRITIS [None]
  - CHEST PAIN [None]
  - ELECTROCARDIOGRAM ST-T SEGMENT ABNORMAL [None]
  - CARDIAC DISORDER [None]
  - EMOTIONAL DISORDER [None]
  - ELECTROCARDIOGRAM POOR R-WAVE PROGRESSION [None]
  - ANXIETY [None]
  - ECONOMIC PROBLEM [None]
  - DYSPNOEA [None]
  - MENTAL DISORDER [None]
  - SINUS ARRHYTHMIA [None]
  - LEFT VENTRICULAR HYPERTROPHY [None]
  - MYOCARDIAL INFARCTION [None]
  - HYPERHIDROSIS [None]
  - MEMORY IMPAIRMENT [None]
  - HERPES ZOSTER [None]
  - HYPOKALAEMIA [None]
  - MULTIPLE INJURIES [None]
